FAERS Safety Report 22858578 (Version 2)
Quarter: 2024Q3

REPORT INFORMATION
  Report Type: Spontaneous
  Country: US (occurrence: US)
  Receive Date: 20230824
  Receipt Date: 20240829
  Transmission Date: 20241017
  Serious: No
  Sender: BOSTON SCIENTIFIC
  Company Number: US-BSC-2023000039

PATIENT
  Age: 40 Year
  Sex: Female

DRUGS (1)
  1. VARITHENA [Suspect]
     Active Substance: POLIDOCANOL
     Indication: Product used for unknown indication
     Dosage: 1ST DOSE
     Dates: start: 20230728, end: 20230728

REACTIONS (1)
  - Blister [Unknown]

NARRATIVE: CASE EVENT DATE: 20230731
